FAERS Safety Report 18543844 (Version 2)
Quarter: 2020Q4

REPORT INFORMATION
  Report Type: Spontaneous
  Country: US (occurrence: US)
  Receive Date: 20201125
  Receipt Date: 20201206
  Transmission Date: 20210114
  Serious: Yes (Hospitalization, Other)
  Sender: FDA-Public Use
  Company Number: US-AMGEN-USASP2020189361

PATIENT
  Age: 73 Year
  Sex: Female
  Weight: 49.9 kg

DRUGS (15)
  1. CYMBALTA [Concomitant]
     Active Substance: DULOXETINE HYDROCHLORIDE
     Dosage: 30 MILLIGRAM, QD
     Route: 048
     Dates: start: 20200918
  2. LIDODERM [Concomitant]
     Active Substance: LIDOCAINE
     Indication: PAIN
     Dosage: UNK UNK, QD, 1 PATCH
     Route: 061
     Dates: start: 20200821
  3. POLYETHYLENE GLYCOL 3350. [Concomitant]
     Active Substance: POLYETHYLENE GLYCOL 3350
     Indication: CONSTIPATION
     Dosage: 17 GRAM, QD
     Route: 048
     Dates: start: 20200508
  4. TIMOLOL. [Concomitant]
     Active Substance: TIMOLOL
     Dosage: UNK UNK, BID, 1 DROP
     Dates: start: 20100401
  5. ATIVAN [Concomitant]
     Active Substance: LORAZEPAM
     Indication: ANXIETY
     Dosage: 1 MILLIGRAM, TID
     Route: 048
     Dates: start: 20201112
  6. ZOLPIDEM TARTRATE. [Concomitant]
     Active Substance: ZOLPIDEM TARTRATE
     Indication: INSOMNIA
     Dosage: 10 MILLIGRAM, AS NECESSARY, BEDTIME
     Route: 048
     Dates: start: 20201112
  7. METOPROLOL TARTRATE. [Concomitant]
     Active Substance: METOPROLOL TARTRATE
     Indication: TACHYCARDIA
     Dosage: 25 MILLIGRAM, BID
     Route: 048
     Dates: start: 20200821
  8. CALCITONIN-SALMON [Concomitant]
     Active Substance: CALCITONIN SALMON
     Dosage: UNK UNK, QD, I SPRAY ALT NOSTRIL
     Dates: start: 20200414
  9. XALATAN [Concomitant]
     Active Substance: LATANOPROST
     Dosage: UNK, 0 ML LACH EYL HS
     Dates: start: 20090610
  10. SYMBICORT [Concomitant]
     Active Substance: BUDESONIDE\FORMOTEROL FUMARATE DIHYDRATE
     Dosage: UNK UNK, BID, 2 PUFF
     Dates: start: 20191125
  11. ZESTRIL [Concomitant]
     Active Substance: LISINOPRIL
     Indication: BLOOD PRESSURE ABNORMAL
     Dosage: 5 MILLIGRAM, QD
     Route: 048
     Dates: start: 20200918
  12. CLONIDINE. [Concomitant]
     Active Substance: CLONIDINE
     Dosage: 0.1 MILLIGRAM, BID
     Route: 048
     Dates: start: 20200918
  13. FOLFOX [Concomitant]
     Active Substance: FLUOROURACIL\LEUCOVORIN CALCIUM\OXALIPLATIN
     Indication: COLORECTAL ADENOCARCINOMA
     Dosage: UNK
  14. PROLIA [Suspect]
     Active Substance: DENOSUMAB
     Indication: OSTEOPOROSIS POSTMENOPAUSAL
     Dosage: 60 MILLIGRAM, Q6MO
     Route: 058
  15. ATORVASTATIN [Concomitant]
     Active Substance: ATORVASTATIN
     Indication: BLOOD CHOLESTEROL ABNORMAL
     Dosage: 10 MILLIGRAM, QD
     Route: 048
     Dates: start: 20200623

REACTIONS (3)
  - Unevaluable event [Unknown]
  - Thoracic vertebral fracture [Unknown]
  - Bone density decreased [Unknown]
